FAERS Safety Report 6055287-9 (Version None)
Quarter: 2009Q1

REPORT INFORMATION
  Report Type: 
  Country: None (occurrence: None)
  Receive Date: 20090122
  Receipt Date: 20090113
  Transmission Date: 20090719
  Serious: No
  Sender: FDA-Public Use
  Company Number: DSU-2009-00084

PATIENT
  Age: 83 Year
  Sex: Male
  Weight: 92.9874 kg

DRUGS (6)
  1. WELCHOL [Suspect]
     Indication: HYPERLIPIDAEMIA
     Dosage: 3750 MG (1875 MG, BID) ,PER ORAL
     Route: 048
     Dates: start: 20081201
  2. LEXAPRO (ESCITALOPRAM OXALATE) (10 MILLIGRAM, TABLET) (ESCITALOPRAM OX [Concomitant]
  3. TERAZOSIN HCL (TERAZOSIN HYDROCHLORIDE) (TABLET) (TERAZOSIN HYDROCHLOR [Concomitant]
  4. FUROSEMIDE (FUROSEMIDE) (20 MILLIGRAM, TABLET) (FUROSEMIDE) [Concomitant]
  5. PANTOPRAZOLE (PANTOPRAZOLE) (40 MILLIGRAM, CAPSULE) (PANTOPRAZOLE) [Concomitant]
  6. PROPRANOLOL (PROPRANOLOL) (60 MILLIGRAM, TABLET) (PROPRANOLOL) [Concomitant]

REACTIONS (2)
  - DYSPHAGIA [None]
  - WRONG TECHNIQUE IN DRUG USAGE PROCESS [None]
